FAERS Safety Report 6566022-X (Version None)
Quarter: 2010Q1

REPORT INFORMATION
  Report Type: 
  Country: None (occurrence: None)
  Receive Date: 20100129
  Receipt Date: 20100129
  Transmission Date: 20100710
  Serious: Yes (Disabling)
  Sender: FDA-Public Use
  Company Number: None

PATIENT
  Sex: Male
  Weight: 90.7194 kg

DRUGS (3)
  1. PROLIXIN [Suspect]
     Indication: ANGER
     Dosage: 1 CC PROLIXIN I.M.
     Route: 030
     Dates: start: 19800101, end: 20020101
  2. HALDOL [Suspect]
     Indication: ANGER
     Dosage: I.M.
     Route: 030
     Dates: start: 19800101, end: 20020101
  3. STELAZINE [Suspect]
     Indication: ANGER
     Dosage: I.M.
     Route: 030
     Dates: start: 19740101, end: 20020101

REACTIONS (1)
  - TARDIVE DYSKINESIA [None]
